FAERS Safety Report 5702481-X (Version None)
Quarter: 2008Q2

REPORT INFORMATION
  Report Type: 
  Country: None (occurrence: None)
  Receive Date: 20080411
  Receipt Date: 20080402
  Transmission Date: 20081010
  Serious: Yes (Other)
  Sender: FDA-Public Use
  Company Number: US-JNJFOC-20080305849

PATIENT
  Sex: Female
  Weight: 88.45 kg

DRUGS (6)
  1. DURAGESIC-100 [Suspect]
     Dosage: TWO 25UG PATCHES
     Route: 062
  2. DURAGESIC-100 [Suspect]
     Route: 062
  3. DURAGESIC-100 [Suspect]
     Indication: BACK PAIN
     Dosage: TWO 25UG PATCHES
     Route: 062
  4. DURAGESIC-100 [Suspect]
     Indication: PAIN
     Route: 062
  5. BISOPROLOL AND HYDROCHLOROTHIAZIDE [Concomitant]
     Indication: HYPERTENSION
     Dosage: 10/6.25MG TABLETS TWICE DAILY
     Route: 048
  6. PLAVIX [Concomitant]
     Indication: VARICOSE VEIN
     Route: 048

REACTIONS (4)
  - BLISTER [None]
  - HYPERTENSION [None]
  - NAUSEA [None]
  - PAIN [None]
